APPROVED DRUG PRODUCT: RIFAMPIN
Active Ingredient: RIFAMPIN
Strength: 600MG/VIAL
Dosage Form/Route: INJECTABLE;INJECTION
Application: A204101 | Product #001
Applicant: AVET LIFESCIENCES LTD
Approved: Aug 18, 2014 | RLD: No | RS: No | Type: DISCN